FAERS Safety Report 16540794 (Version 1)
Quarter: 2019Q3

REPORT INFORMATION
  Report Type: Spontaneous
  Country: US (occurrence: US)
  Receive Date: 20190707
  Receipt Date: 20190707
  Transmission Date: 20191004
  Serious: Yes (Disabling)
  Sender: FDA-Public Use
  Company Number: None

PATIENT
  Age: 36 Year
  Sex: Female
  Weight: 56.25 kg

DRUGS (4)
  1. EYE DROPS [Concomitant]
     Active Substance: UNSPECIFIED INGREDIENT
  2. EQUATE SUPPORT MOISTURE LUBRICANT EYE [Suspect]
     Active Substance: PROPYLENE GLYCOL
     Indication: DRY EYE
     Dosage: ?          QUANTITY:0.33 OUNCE(S);?
     Dates: start: 20190427, end: 20190707
  3. FIBER [Concomitant]
     Active Substance: PSYLLIUM HUSK
  4. IRON [Concomitant]
     Active Substance: IRON

REACTIONS (2)
  - Eye infection [None]
  - Recalled product administered [None]

NARRATIVE: CASE EVENT DATE: 20190430
